FAERS Safety Report 7560477-X (Version None)
Quarter: 2011Q2

REPORT INFORMATION
  Report Type: 
  Country: None (occurrence: None)
  Receive Date: 20110621
  Receipt Date: 20110613
  Transmission Date: 20111010
  Serious: Yes (Death, Hospitalization)
  Sender: FDA-Public Use
  Company Number: US-BRISTOL-MYERS SQUIBB COMPANY-14917421

PATIENT
  Age: 86 Year
  Sex: Male

DRUGS (10)
  1. FUROSEMIDE [Concomitant]
  2. LISINOPRIL [Concomitant]
  3. FOSAMAX [Concomitant]
  4. ALLOPURINOL [Concomitant]
  5. OMEGA 3 FATTY ACID [Concomitant]
  6. MULTI-VITAMIN [Concomitant]
  7. WARFARIN SODIUM [Suspect]
     Indication: THROMBOSIS PROPHYLAXIS
     Dosage: 1 DF-2MG OR 4MG;DRUG INTERRUPTED 28DEC09;
     Route: 048
     Dates: start: 20090408
  8. PLACEBO [Suspect]
     Indication: THROMBOSIS PROPHYLAXIS
     Dosage: INTERRUPTED ON 28DEC09
     Route: 048
     Dates: start: 20090408
  9. ATENOLOL [Concomitant]
  10. CALCIUM + VITAMIN D [Concomitant]

REACTIONS (2)
  - CARDIAC FAILURE CONGESTIVE [None]
  - RENAL FAILURE ACUTE [None]
